FAERS Safety Report 8262728 (Version 7)
Quarter: 2013Q2

REPORT INFORMATION
  Report Type: Report from Study
  Country: US (occurrence: US)
  Receive Date: 20111124
  Receipt Date: 20130418
  Transmission Date: 20140414
  Serious: Yes (Hospitalization, Other)
  Sender: FDA-Public Use
  Company Number: US-ROCHE-1011760

PATIENT
  Age: 65 Year
  Sex: Male
  Weight: 100.4 kg

DRUGS (3)
  1. VEMURAFENIB [Suspect]
     Indication: NEOPLASM
     Dosage: TOTAL DOSE IN MOST RECENT CYCLE: 49.920 MG
     Route: 048
     Dates: start: 20090505, end: 20111105
  2. VEMURAFENIB [Suspect]
     Route: 048
     Dates: start: 20111213
  3. VEMURAFENIB [Suspect]
     Route: 065

REACTIONS (2)
  - Gastrointestinal haemorrhage [Recovered/Resolved]
  - Gastric polyps [Recovered/Resolved]
